FAERS Safety Report 13089427 (Version 9)
Quarter: 2017Q2

REPORT INFORMATION
  Report Type: Spontaneous
  Country: US (occurrence: US)
  Receive Date: 20170105
  Receipt Date: 20170518
  Transmission Date: 20170830
  Serious: No
  Sender: FDA-Public Use
  Company Number: US-PFIZER INC-2016580891

PATIENT
  Age: 75 Year
  Sex: Male

DRUGS (8)
  1. SUTENT [Suspect]
     Active Substance: SUNITINIB MALATE
     Indication: RENAL CANCER METASTATIC
     Dosage: 37.5 MG, CYCLIC (DAILY 2 WEEKS ON/1 WEEK OFF)
     Route: 048
     Dates: start: 20161212, end: 20170327
  2. AMLODIPINE [Concomitant]
     Active Substance: AMLODIPINE BESYLATE
     Dosage: UNK
  3. POTASSIUM [Concomitant]
     Active Substance: POTASSIUM
     Dosage: UNK
  4. STOOL SOFTENER (DOCUSATE) [Concomitant]
     Active Substance: DOCUSATE
     Dosage: UNK
  5. PREDNISONE. [Concomitant]
     Active Substance: PREDNISONE
     Dosage: UNK
  6. CYMBALTA [Concomitant]
     Active Substance: DULOXETINE HYDROCHLORIDE
     Dosage: UNK
  7. INSULIN [Concomitant]
     Active Substance: INSULIN NOS
     Dosage: UNK
  8. TYLENOL WITH CODEINE [Concomitant]
     Active Substance: ACETAMINOPHEN\CODEINE PHOSPHATE
     Dosage: UNK

REACTIONS (20)
  - Epistaxis [Unknown]
  - Pain [Not Recovered/Not Resolved]
  - Eye swelling [Unknown]
  - Fatigue [Not Recovered/Not Resolved]
  - Hunger [Unknown]
  - Irritability [Not Recovered/Not Resolved]
  - Poor quality sleep [Unknown]
  - Weight decreased [Unknown]
  - Hypertension [Not Recovered/Not Resolved]
  - Ageusia [Not Recovered/Not Resolved]
  - Somnolence [Unknown]
  - Weight increased [Unknown]
  - Decreased appetite [Not Recovered/Not Resolved]
  - Back disorder [Unknown]
  - Neoplasm progression [Unknown]
  - Musculoskeletal chest pain [Not Recovered/Not Resolved]
  - Joint lock [Unknown]
  - Influenza like illness [Not Recovered/Not Resolved]
  - Dysgeusia [Not Recovered/Not Resolved]
  - Oedema [Not Recovered/Not Resolved]

NARRATIVE: CASE EVENT DATE: 201612
